FAERS Safety Report 10787535 (Version 1)
Quarter: 2015Q1

REPORT INFORMATION
  Report Type: Spontaneous
  Country: CA (occurrence: CA)
  Receive Date: 20150212
  Receipt Date: 20150212
  Transmission Date: 20150721
  Serious: Yes (Hospitalization, Other)
  Sender: FDA-Public Use
  Company Number: CA-PFIZER INC-2014249926

PATIENT
  Age: 38 Year
  Sex: Male
  Weight: 68.27 kg

DRUGS (5)
  1. DILANTIN [Suspect]
     Active Substance: PHENYTOIN
     Indication: EPILEPSY
     Dosage: 300 MG, DAILY IN THE EVENING
     Route: 048
     Dates: start: 2009, end: 2014
  2. DILANTIN [Suspect]
     Active Substance: PHENYTOIN
     Dosage: 100 MG, 2X/DAY
     Route: 048
     Dates: start: 2014, end: 2014
  3. AERIUS [Concomitant]
     Active Substance: DESLORATADINE
     Indication: SINUS CONGESTION
  4. DILANTIN [Suspect]
     Active Substance: PHENYTOIN
     Dosage: 200 MG, 2X/DAY
     Route: 048
     Dates: start: 201404
  5. AERIUS [Concomitant]
     Active Substance: DESLORATADINE
     Indication: HYPERSENSITIVITY
     Dosage: TAKEN 3 DAYS BEFORE FLYING, AS NEEDED
     Dates: start: 2011

REACTIONS (3)
  - Loss of consciousness [Recovered/Resolved with Sequelae]
  - Anticonvulsant drug level decreased [Recovered/Resolved with Sequelae]
  - Generalised tonic-clonic seizure [Recovered/Resolved with Sequelae]

NARRATIVE: CASE EVENT DATE: 201401
